FAERS Safety Report 15757755 (Version 5)
Quarter: 2019Q2

REPORT INFORMATION
  Report Type: Report from Study
  Country: US (occurrence: US)
  Receive Date: 20181225
  Receipt Date: 20190408
  Transmission Date: 20190711
  Serious: Yes (Death, Hospitalization, Other)
  Sender: FDA-Public Use
  Company Number: US-ROCHE-2229586

PATIENT
  Age: 62 Year
  Sex: Male
  Weight: 102.6 kg

DRUGS (60)
  1. ONCOVIN [Suspect]
     Active Substance: VINCRISTINE SULFATE
     Indication: RICHTER^S SYNDROME
     Dosage: CONTINUOS FOR 96 HRS.
     Route: 042
     Dates: start: 20181201, end: 20181204
  2. MIRALAX [Concomitant]
     Active Substance: POLYETHYLENE GLYCOL 3350
  3. SODIUM PHOSPHATES ENEMA [Concomitant]
  4. ACETAMINOPHEN. [Concomitant]
     Active Substance: ACETAMINOPHEN
     Route: 065
  5. CASPOFUNGIN [Concomitant]
     Active Substance: CASPOFUNGIN
     Route: 042
  6. DEXTROMETHORPHAN [Concomitant]
     Active Substance: DEXTROMETHORPHAN
     Route: 048
  7. ONDASETRON [Concomitant]
     Active Substance: ONDANSETRON
     Route: 042
  8. DOXORUBICIN [Suspect]
     Active Substance: DOXORUBICIN
     Indication: RICHTER^S SYNDROME
     Dosage: CONTINUOS FOR 96 HRS.
     Route: 042
     Dates: start: 20181201, end: 20181204
  9. LASIX [Concomitant]
     Active Substance: FUROSEMIDE
  10. LABETALOL [Concomitant]
     Active Substance: LABETALOL\LABETALOL HYDROCHLORIDE
  11. ATIVAN [Concomitant]
     Active Substance: LORAZEPAM
  12. ACYCLOVIR. [Concomitant]
     Active Substance: ACYCLOVIR
     Route: 048
  13. BENZONATATE. [Concomitant]
     Active Substance: BENZONATATE
     Route: 048
  14. IPRATROPIUM [Concomitant]
     Active Substance: IPRATROPIUM
     Route: 065
  15. LOPERAMIDE [Concomitant]
     Active Substance: LOPERAMIDE
     Route: 048
  16. VINCRISTINE [Concomitant]
     Active Substance: VINCRISTINE
  17. DAPSONE. [Concomitant]
     Active Substance: DAPSONE
     Route: 048
  18. MAGNESIUM SULFATE. [Concomitant]
     Active Substance: MAGNESIUM SULFATE
  19. TRAMADOL. [Concomitant]
     Active Substance: TRAMADOL
     Route: 065
  20. ALUMINUM MAGNESIUM HYDROXIDE [Concomitant]
     Route: 048
  21. LEVOFLOXACIN. [Concomitant]
     Active Substance: LEVOFLOXACIN
     Route: 065
  22. SODIUM BICARBONATE. [Concomitant]
     Active Substance: SODIUM BICARBONATE
     Route: 065
  23. MELATONIN [Concomitant]
     Active Substance: MELATONIN
     Route: 065
  24. POTASSIUM CHLORIDE. [Concomitant]
     Active Substance: POTASSIUM CHLORIDE
  25. TYLENOL [Concomitant]
     Active Substance: ACETAMINOPHEN
  26. MAALOX (ALUMINUM HYDROXIDE/MAGNESIUM HYDROXIDE) [Concomitant]
  27. REGULAR INSULIN [Concomitant]
     Active Substance: INSULIN NOS
  28. POTASSIUM CHLORIDE. [Concomitant]
     Active Substance: POTASSIUM CHLORIDE
  29. POSACONAZOLE [Suspect]
     Active Substance: POSACONAZOLE
     Route: 065
  30. CALCIUM GLUCONATE. [Concomitant]
     Active Substance: CALCIUM GLUCONATE
  31. IBRUTINIB [Concomitant]
     Active Substance: IBRUTINIB
  32. METOPROLOL TARTRATE. [Concomitant]
     Active Substance: METOPROLOL TARTRATE
     Route: 065
     Dates: start: 20181121
  33. SPIRONOLACTONE. [Concomitant]
     Active Substance: SPIRONOLACTONE
     Route: 065
  34. DOCUSATE [Concomitant]
     Active Substance: DOCUSATE
  35. CYCLOPHOSPHAMIDE. [Suspect]
     Active Substance: CYCLOPHOSPHAMIDE
     Indication: RICHTER^S SYNDROME
     Dosage: ONCE
     Route: 042
     Dates: start: 20181204
  36. ALLOPURINOL. [Concomitant]
     Active Substance: ALLOPURINOL
     Route: 048
  37. PIPERACILLIN/TAZOBACTAM [Concomitant]
     Active Substance: PIPERACILLIN SODIUM\TAZOBACTAM SODIUM
     Route: 065
  38. SODIUM CHLORIDE. [Concomitant]
     Active Substance: SODIUM CHLORIDE
     Route: 042
  39. PROTONIX [Concomitant]
     Active Substance: PANTOPRAZOLE SODIUM
     Route: 065
  40. PREDNISONE. [Suspect]
     Active Substance: PREDNISONE
     Indication: RICHTER^S SYNDROME
     Route: 048
     Dates: start: 20181129, end: 20181204
  41. ZOFRAN [Concomitant]
     Active Substance: ONDANSETRON HYDROCHLORIDE
  42. METOPROLOL TARTRATE. [Concomitant]
     Active Substance: METOPROLOL TARTRATE
     Dosage: EVERY NIGHT
     Route: 065
  43. POLYETHYLENE GLYCOL [Concomitant]
     Active Substance: POLYETHYLENE GLYCOLS
     Route: 065
  44. CALAMINE [Concomitant]
     Active Substance: CALAMINE\FERRIC OXIDE RED\ZINC OXIDE
  45. POSACONAZOLE [Suspect]
     Active Substance: POSACONAZOLE
     Indication: RICHTER^S SYNDROME
     Route: 065
  46. BENADRYL [Concomitant]
     Active Substance: DIPHENHYDRAMINE HYDROCHLORIDE
  47. HYDROCORTISONE. [Concomitant]
     Active Substance: HYDROCORTISONE
  48. MELATONIN [Concomitant]
     Active Substance: MELATONIN
  49. LACTULOSE. [Concomitant]
     Active Substance: LACTULOSE
  50. SIMETHICONE (DIMETHICONE) [Concomitant]
     Active Substance: DIMETHICONE
  51. LORAZEPAM. [Concomitant]
     Active Substance: LORAZEPAM
     Route: 048
  52. PANTOPRAZOLE [Concomitant]
     Active Substance: PANTOPRAZOLE
     Route: 065
  53. PROTONIX (OMEPRAZOLE) [Concomitant]
     Active Substance: OMEPRAZOLE
  54. RITUXIMAB. [Suspect]
     Active Substance: RITUXIMAB
     Indication: RICHTER^S SYNDROME
     Dosage: ONCE
     Route: 042
     Dates: start: 20181129
  55. ETOPOSIDE. [Suspect]
     Active Substance: ETOPOSIDE
     Indication: RICHTER^S SYNDROME
     Dosage: CONTINUOS FOR 96 HRS.
     Route: 042
     Dates: start: 20181201, end: 20181204
  56. HUMALOG [Concomitant]
     Active Substance: INSULIN LISPRO
  57. VENETOCLAX. [Concomitant]
     Active Substance: VENETOCLAX
  58. LEVOFLOXACIN. [Concomitant]
     Active Substance: LEVOFLOXACIN
     Route: 042
  59. CALCIUM CARBONATE. [Concomitant]
     Active Substance: CALCIUM CARBONATE
     Route: 065
  60. TESSALON [Concomitant]
     Active Substance: BENZONATATE

REACTIONS (8)
  - Ileus [Recovering/Resolving]
  - Death [Fatal]
  - Ventricular extrasystoles [Unknown]
  - Cardiac arrest [Fatal]
  - Brain injury [Unknown]
  - Abdominal pain [Unknown]
  - Ventricular tachycardia [Unknown]
  - Constipation [Unknown]

NARRATIVE: CASE EVENT DATE: 20181205
